FAERS Safety Report 8457430-0 (Version None)
Quarter: 2012Q2

REPORT INFORMATION
  Report Type: 
  Country: None (occurrence: None)
  Receive Date: 20120621
  Receipt Date: 20120614
  Transmission Date: 20120825
  Serious: Yes (Hospitalization)
  Sender: FDA-Public Use
  Company Number: FR-MERCK-1206USA02952

PATIENT
  Age: 92 Year
  Sex: Female

DRUGS (12)
  1. GENTAMICIN [Suspect]
     Route: 042
     Dates: start: 20120506, end: 20120509
  2. VANCOMYCIN HCL [Suspect]
     Route: 042
     Dates: start: 20120506, end: 20120508
  3. ACETAMINOPHEN [Concomitant]
     Route: 065
  4. PRIMAXIN [Suspect]
     Route: 042
     Dates: start: 20120507, end: 20120521
  5. PIPERACILLIN SODIUM [Suspect]
     Route: 042
     Dates: start: 20120506, end: 20120509
  6. NICARDIPINE HYDROCHLORIDE [Concomitant]
     Route: 065
  7. PENTOXIFYLLINE [Concomitant]
     Route: 065
     Dates: end: 20120418
  8. DIGOXIN [Concomitant]
     Route: 065
  9. AMIKACIN [Suspect]
     Route: 065
     Dates: start: 20120507, end: 20120510
  10. MINISINTROM [Suspect]
     Route: 048
     Dates: start: 20120425
  11. ZOLPIDEM TARTRATE [Concomitant]
     Route: 065
  12. NEBIVOLOL HCL [Concomitant]
     Route: 065

REACTIONS (3)
  - DRUG INTERACTION [None]
  - OVERDOSE [None]
  - INTERNATIONAL NORMALISED RATIO INCREASED [None]
